FAERS Safety Report 11261360 (Version 2)
Quarter: 2016Q1

REPORT INFORMATION
  Report Type: Spontaneous
  Country: FR (occurrence: FR)
  Receive Date: 20150710
  Receipt Date: 20160105
  Transmission Date: 20160525
  Serious: Yes (Hospitalization)
  Sender: FDA-Public Use
  Company Number: FR-009507513-1507FRA004265

PATIENT
  Sex: Female
  Weight: 65 kg

DRUGS (4)
  1. KARDEGIC [Concomitant]
     Active Substance: ASPIRIN LYSINE
  2. JANUMET [Suspect]
     Active Substance: METFORMIN HYDROCHLORIDE\SITAGLIPTIN PHOSPHATE
     Dosage: 1 DF, BID
     Route: 048
     Dates: start: 2012, end: 2015
  3. MICARDIS [Concomitant]
     Active Substance: TELMISARTAN
  4. FLECAINE [Concomitant]
     Active Substance: FLECAINIDE

REACTIONS (2)
  - Acute pulmonary oedema [Unknown]
  - Cardiac failure [Unknown]
